FAERS Safety Report 17830077 (Version 1)
Quarter: 2020Q2

REPORT INFORMATION
  Report Type: Spontaneous
  Country: US (occurrence: US)
  Receive Date: 20200527
  Receipt Date: 20200527
  Transmission Date: 20200714
  Serious: No
  Sender: FDA-Public Use
  Company Number: US-GLAXOSMITHKLINE-US2020087438

PATIENT
  Age: 76 Year
  Sex: Female

DRUGS (3)
  1. TRELEGY ELLIPTA [Suspect]
     Active Substance: FLUTICASONE FUROATE\UMECLIDINIUM BROMIDE\VILANTEROL TRIFENATATE
     Indication: PRODUCT USED FOR UNKNOWN INDICATION
     Dosage: 1 PUFF(S), QD
     Route: 055
     Dates: start: 201912
  2. GUAIFENESIN. [Suspect]
     Active Substance: GUAIFENESIN
     Indication: INCREASED VISCOSITY OF BRONCHIAL SECRETION
     Dosage: UNK
     Route: 065
  3. LASIX [Suspect]
     Active Substance: FUROSEMIDE
     Indication: PRODUCT USED FOR UNKNOWN INDICATION
     Dosage: UNK
     Route: 065
     Dates: start: 202005

REACTIONS (20)
  - Skin exfoliation [Not Recovered/Not Resolved]
  - Lip disorder [Unknown]
  - Chest discomfort [Unknown]
  - Muscle spasms [Unknown]
  - Product dose omission [Unknown]
  - Quarantine [Unknown]
  - Pain in extremity [Unknown]
  - Dysstasia [Unknown]
  - Back pain [Unknown]
  - Condition aggravated [Unknown]
  - Taste disorder [Not Recovered/Not Resolved]
  - Night sweats [Unknown]
  - Rhinorrhoea [Not Recovered/Not Resolved]
  - Panic attack [Unknown]
  - Incontinence [Unknown]
  - Increased viscosity of bronchial secretion [Not Recovered/Not Resolved]
  - Headache [Recovered/Resolved]
  - Micturition urgency [Not Recovered/Not Resolved]
  - Fluid retention [Not Recovered/Not Resolved]
  - Oropharyngeal pain [Recovered/Resolved]

NARRATIVE: CASE EVENT DATE: 202002
